FAERS Safety Report 11346503 (Version 1)
Quarter: 2015Q3

REPORT INFORMATION
  Report Type: Spontaneous
  Country: US (occurrence: US)
  Receive Date: 20150803
  Receipt Date: 20150803
  Transmission Date: 20151125
  Serious: No
  Sender: FDA-Public Use
  Company Number: US-ELI_LILLY_AND_COMPANY-US201010006428

PATIENT
  Age: 28 Year
  Sex: Male

DRUGS (2)
  1. ZOLOFT [Concomitant]
     Active Substance: SERTRALINE HYDROCHLORIDE
     Dosage: 25 MG, UNK
  2. ZYPREXA [Suspect]
     Active Substance: OLANZAPINE

REACTIONS (3)
  - Off label use [Unknown]
  - Weight increased [Unknown]
  - Increased appetite [Unknown]
